FAERS Safety Report 15849345 (Version 1)
Quarter: 2019Q1

REPORT INFORMATION
  Report Type: Report from Study
  Country: GB (occurrence: BE)
  Receive Date: 20190121
  Receipt Date: 20190121
  Transmission Date: 20190417
  Serious: Yes (Hospitalization)
  Sender: FDA-Public Use
  Company Number: BE-TEVA-2019-BE-1001778

PATIENT
  Age: 78 Year
  Sex: Female
  Weight: 73.5 kg

DRUGS (6)
  1. AVASTIN [Suspect]
     Active Substance: BEVACIZUMAB
     Indication: COLON CANCER
     Route: 042
     Dates: start: 20101210, end: 20101210
  2. FOLINIC ACID [Suspect]
     Active Substance: LEUCOVORIN
     Indication: COLON CANCER
     Route: 042
     Dates: start: 20101210
  3. OXALIPLATIN. [Suspect]
     Active Substance: OXALIPLATIN
     Indication: COLON CANCER
     Route: 042
     Dates: start: 20101210, end: 20101210
  4. 5-FU [Suspect]
     Active Substance: FLUOROURACIL
     Indication: COLON CANCER
     Dosage: FORM: INFUSION
     Route: 041
     Dates: start: 20101210, end: 20101210
  5. 5-FU [Suspect]
     Active Substance: FLUOROURACIL
     Dosage: FORM: BOLUS
     Route: 040
     Dates: start: 20101210, end: 20101210
  6. ASAFLOW [Concomitant]
     Active Substance: ASPIRIN
     Dates: start: 20101210

REACTIONS (7)
  - Neurotoxicity [Not Recovered/Not Resolved]
  - Deep vein thrombosis [Recovered/Resolved]
  - Gastrooesophageal reflux disease [Recovered/Resolved]
  - Nausea [Recovered/Resolved]
  - Pneumonia [Recovered/Resolved]
  - Candida infection [Recovered/Resolved]
  - Anaemia [Recovered/Resolved]

NARRATIVE: CASE EVENT DATE: 20110101
